FAERS Safety Report 7350519-9 (Version None)
Quarter: 2011Q1

REPORT INFORMATION
  Report Type: 
  Country: None (occurrence: None)
  Receive Date: 20110314
  Receipt Date: 20110308
  Transmission Date: 20110831
  Serious: Yes (Death, Hospitalization)
  Sender: FDA-Public Use
  Company Number: US-CELGENEUS-163-21880-10121993

PATIENT
  Sex: Female
  Weight: 57.1 kg

DRUGS (1)
  1. REVLIMID [Suspect]
     Indication: MULTIPLE MYELOMA
     Dosage: 25 MILLIGRAM
     Route: 048
     Dates: start: 20100701, end: 20100824

REACTIONS (5)
  - COMPRESSION FRACTURE [None]
  - RESPIRATORY FAILURE [None]
  - PAIN [None]
  - MULTIPLE MYELOMA [None]
  - CARDIO-RESPIRATORY ARREST [None]
